FAERS Safety Report 19653056 (Version 1)
Quarter: 2021Q3

REPORT INFORMATION
  Report Type: Spontaneous
  Country: DK (occurrence: DK)
  Receive Date: 20210803
  Receipt Date: 20210803
  Transmission Date: 20211014
  Serious: Yes (Death)
  Sender: FDA-Public Use
  Company Number: DK-MYLANLABS-2021M1047303

PATIENT
  Age: 9 Year
  Sex: Male

DRUGS (1)
  1. CISPLATIN. [Suspect]
     Active Substance: CISPLATIN
     Indication: BRAIN NEOPLASM
     Dosage: STRENGHT: UNKNOWN. DOSAGE: UNKNOWN.
     Dates: start: 20120806

REACTIONS (10)
  - Restlessness [Not Recovered/Not Resolved]
  - Rectal haemorrhage [Fatal]
  - Neutropenia [Fatal]
  - Liver disorder [Fatal]
  - Candida sepsis [Fatal]
  - Renal disorder [Fatal]
  - Confusional state [Not Recovered/Not Resolved]
  - Mucosal disorder [Fatal]
  - Mouth haemorrhage [Fatal]
  - Vomiting [Not Recovered/Not Resolved]

NARRATIVE: CASE EVENT DATE: 201208
